FAERS Safety Report 21619556 (Version 2)
Quarter: 2023Q4

REPORT INFORMATION
  Report Type: Spontaneous
  Country: PK (occurrence: PK)
  Receive Date: 20221121
  Receipt Date: 20231206
  Transmission Date: 20240110
  Serious: Yes (Other)
  Sender: FDA-Public Use
  Company Number: PK-PFIZER INC-PV202200033936

PATIENT
  Age: 25 Year
  Sex: Female

DRUGS (13)
  1. ENBREL [Suspect]
     Active Substance: ETANERCEPT
     Indication: Rheumatoid arthritis
     Dosage: 50 MG, WEEKLY
     Route: 058
     Dates: start: 20220519
  2. Rapicort [Concomitant]
     Dosage: 5MG 1+0 2 TABLET AFTER 2 WEEKS, EVERY OTHER DAY
  3. SERT [Concomitant]
     Dosage: 50MG 0+1 AT NIGHT
  4. SERT [Concomitant]
     Dosage: 50 MG (0+1  AT NIGHT)
  5. SERT [Concomitant]
     Dosage: 50 MG, DAILY TRY TO DECREASE AND THEN STOP
  6. ETORICOXIB [Concomitant]
     Active Substance: ETORICOXIB
     Indication: Pain
     Dosage: UNK, QD
  7. ETORICOXIB [Concomitant]
     Active Substance: ETORICOXIB
     Dosage: 90 MG, AS NEEDED
  8. Ruling [Concomitant]
     Dosage: RULING 1+0 MORNING
  9. Zeegap [Concomitant]
     Dosage: 1+1 MORNING AND EVENING
  10. WILGESIC [Concomitant]
     Dosage: 1+1 MORNING AND EVENING
  11. THYROXINE [Concomitant]
     Active Substance: LEVOTHYROXINE
     Dosage: 50 MG, DAILY IN MORNING
  12. EVION [Concomitant]
     Active Substance: .ALPHA.-TOCOPHEROL ACETATE
     Dosage: 4 MG, DAILY
  13. CAC [Concomitant]
     Dosage: 1000 DAILY

REACTIONS (7)
  - Hypothyroidism [Unknown]
  - Musculoskeletal discomfort [Unknown]
  - Muscle discomfort [Unknown]
  - Back pain [Unknown]
  - Synovial cyst [Unknown]
  - Weight increased [Unknown]
  - Arthralgia [Unknown]
